FAERS Safety Report 8489862-9 (Version None)
Quarter: 2012Q3

REPORT INFORMATION
  Report Type: 
  Country: None (occurrence: None)
  Receive Date: 20120705
  Receipt Date: 20120628
  Transmission Date: 20120928
  Serious: Yes (Other)
  Sender: FDA-Public Use
  Company Number: PHHY2012VE055728

PATIENT
  Age: 24 Year
  Sex: Male

DRUGS (6)
  1. LEVOMEPROMAZINE [Concomitant]
     Dosage: 25 MG, TID
     Route: 048
  2. HALOPERIDOL [Suspect]
     Indication: PSYCHOTIC DISORDER
     Dosage: 5 MG, TID
     Route: 048
  3. COCAINE [Concomitant]
  4. ALCOHOL [Concomitant]
     Dosage: 150 G, PER DAY
  5. CARBAMAZEPINE [Concomitant]
     Dosage: 200 MG, TID
     Route: 048
  6. DEXTROMETHORPHAN HYDROBROMIDE [Concomitant]
     Dosage: 5 ML, DAILY

REACTIONS (3)
  - HYPERPROLACTINAEMIA [None]
  - PITUITARY TUMOUR BENIGN [None]
  - BREAST ENLARGEMENT [None]
